FAERS Safety Report 13432786 (Version 1)
Quarter: 2017Q2

REPORT INFORMATION
  Report Type: Spontaneous
  Country: GR (occurrence: GR)
  Receive Date: 20170412
  Receipt Date: 20170412
  Transmission Date: 20170830
  Serious: Yes (Hospitalization, Other)
  Sender: FDA-Public Use
  Company Number: GR-009507513-1704GRC003161

PATIENT
  Age: 64 Year
  Sex: Female
  Weight: 68 kg

DRUGS (16)
  1. ESMERON [Suspect]
     Active Substance: ROCURONIUM BROMIDE
     Dosage: 20 MG, ONCE
  2. MEPERIDINE HYDROCHLORIDE. [Concomitant]
     Active Substance: MEPERIDINE HYDROCHLORIDE
     Indication: ANALGESIC THERAPY
     Dosage: 50 MG, UNK
     Route: 030
     Dates: start: 20150319
  3. PROPOFOL. [Concomitant]
     Active Substance: PROPOFOL
     Indication: ANAESTHESIA PROCEDURE
     Dosage: 100 MG, ONCE
     Dates: start: 20150319, end: 20150319
  4. ETOMIDATE. [Concomitant]
     Active Substance: ETOMIDATE
     Indication: ANAESTHESIA PROCEDURE
     Dosage: 20 MG, ONCE
     Dates: start: 20150319, end: 20150319
  5. SUCCINYLCHOLINE CHLORIDE. [Concomitant]
     Active Substance: SUCCINYLCHOLINE CHLORIDE
     Indication: ANAESTHESIA PROCEDURE
     Dosage: 75 MG, ONCE
     Dates: start: 20150319, end: 20150319
  6. DESFLURANE. [Concomitant]
     Active Substance: DESFLURANE
     Indication: MAINTENANCE OF ANAESTHESIA
     Dosage: 6 %, UNK
     Dates: start: 20150319, end: 20150319
  7. MIDAZOLAM [Suspect]
     Active Substance: MIDAZOLAM HYDROCHLORIDE
     Indication: ANAESTHESIA PROCEDURE
     Dosage: 1.5 MG, ONCE
     Dates: start: 20150319, end: 20150319
  8. DEXAMETHASONE. [Suspect]
     Active Substance: DEXAMETHASONE
     Indication: ANAESTHESIA PROCEDURE
     Dosage: 4 MG, ONCE
     Dates: start: 20150319, end: 20150319
  9. ESMERON [Suspect]
     Active Substance: ROCURONIUM BROMIDE
     Indication: ANAESTHESIA PROCEDURE
     Dosage: 20 MG, ONCE
     Dates: start: 20150319, end: 20150319
  10. ESMERON [Suspect]
     Active Substance: ROCURONIUM BROMIDE
     Dosage: 50 MG, ONCE
  11. TRAMAL [Concomitant]
     Active Substance: TRAMADOL
     Indication: ANALGESIC THERAPY
     Dosage: 100 MG, UNK
     Dates: start: 20150319
  12. MEPERIDINE HYDROCHLORIDE. [Concomitant]
     Active Substance: MEPERIDINE HYDROCHLORIDE
     Dosage: 25 MG, UNK
     Route: 042
  13. RADACEF (CEFORANIDE SODIUM) [Concomitant]
     Dosage: 2 G, 45 MINUTES BEFORE THE ENDOF THE SURGERY.
     Route: 042
  14. FENTANYL. [Concomitant]
     Active Substance: FENTANYL
     Indication: ANAESTHESIA PROCEDURE
     Dosage: 75 MICROGRAM, ONCE
     Dates: start: 20150319, end: 20150319
  15. PROPOFOL. [Concomitant]
     Active Substance: PROPOFOL
     Dosage: 100 MG INTRAVENOUS 45 MINUTES BEFORE THE AWAKENING OF THE PATIENT.
     Route: 042
  16. BRIDION [Suspect]
     Active Substance: SUGAMMADEX
     Indication: NEUROMUSCULAR BLOCKADE REVERSAL
     Dosage: 200 MG, ONCE
     Route: 042
     Dates: start: 20150319, end: 20150319

REACTIONS (3)
  - Bronchospasm [Recovered/Resolved]
  - Myocardial infarction [Recovered/Resolved]
  - Anaphylactic reaction [Recovered/Resolved]

NARRATIVE: CASE EVENT DATE: 20150319
